FAERS Safety Report 4489701-7 (Version None)
Quarter: 2004Q4

REPORT INFORMATION
  Report Type: 
  Country: None (occurrence: None)
  Receive Date: 20041101
  Receipt Date: 20041019
  Transmission Date: 20050328
  Serious: Yes (Other)
  Sender: FDA-Public Use
  Company Number: US-BRISTOL-MYERS SQUIBB COMPANY-12744793

PATIENT
  Age: 74 Year
  Sex: Male
  Weight: 78 kg

DRUGS (14)
  1. COUMADIN [Suspect]
     Indication: COAGULOPATHY
  2. NATRECOR [Suspect]
     Dosage: AS OF 29-JUN-04,DOSE NESIRITIDE Q 3 DAYS, 2 UG/KG BOLUS + 0.02UG/KG/MIN CONT INFUSION
     Route: 051
     Dates: start: 20040217
  3. SENOKOT [Concomitant]
  4. TIKOSYN [Concomitant]
  5. BUMEX [Concomitant]
  6. COREG [Concomitant]
  7. ZOCOR [Concomitant]
  8. K-DUR 10 [Concomitant]
  9. ALDACTONE [Concomitant]
  10. DIGOXIN [Concomitant]
  11. DIOVAN HCT [Concomitant]
  12. PAXIL [Concomitant]
  13. AMITRIPTYLINE HCL [Concomitant]
  14. AMBIEN [Concomitant]

REACTIONS (10)
  - ARTHRITIS [None]
  - BLOOD CREATININE INCREASED [None]
  - BLOOD UREA INCREASED [None]
  - CATHETER SITE INFECTION [None]
  - CONSTIPATION [None]
  - DIARRHOEA [None]
  - DYSPNOEA [None]
  - HYPOTENSION [None]
  - INTERNATIONAL NORMALISED RATIO INCREASED [None]
  - RASH PRURITIC [None]
